FAERS Safety Report 9947462 (Version 1)
Quarter: 2014Q1

REPORT INFORMATION
  Report Type: Report from Study
  Country: US (occurrence: US)
  Receive Date: 20140303
  Receipt Date: 20140303
  Transmission Date: 20141002
  Serious: No
  Sender: FDA-Public Use
  Company Number: US-ABBVIE-13P-163-1061974-00

PATIENT
  Age: 45 Year
  Sex: Female
  Weight: 92.16 kg

DRUGS (5)
  1. HUMIRA [Suspect]
     Indication: OSTEOARTHRITIS
     Route: 058
     Dates: start: 201208
  2. HUMIRA [Suspect]
     Indication: SARCOIDOSIS
  3. UNKNOWN MEDICATION [Concomitant]
     Indication: HYPOTHYROIDISM
  4. UNKNOWN MEDICATION [Concomitant]
     Indication: PAIN
  5. UNKNOWN MEDICATION [Concomitant]
     Indication: SINUS DISORDER

REACTIONS (1)
  - Off label use [Unknown]
